FAERS Safety Report 8938760 (Version 3)
Quarter: 2012Q4

REPORT INFORMATION
  Report Type: 
  Country: SE (occurrence: SE)
  Receive Date: 20121203
  Receipt Date: 20121227
  Transmission Date: 20130627
  Serious: Yes (Hospitalization)
  Sender: FDA-Public Use
  Company Number: SE-BAYER-2012-125099

PATIENT
  Age: 44 Year
  Sex: Female

DRUGS (1)
  1. MIRENA [Suspect]
     Dosage: 20 mcg/24hr, CONT
     Route: 015
     Dates: start: 20120530

REACTIONS (12)
  - Salpingitis [None]
  - Sepsis [Recovered/Resolved]
  - Pyrexia [Recovered/Resolved]
  - Fatigue [Recovered/Resolved]
  - Nausea [Recovered/Resolved]
  - Ovarian cyst [None]
  - Tubo-ovarian abscess [None]
  - Adnexal torsion [None]
  - Peritonitis [None]
  - Adnexal torsion [None]
  - Septic shock [Recovered/Resolved]
  - Abdominal pain lower [None]
